FAERS Safety Report 11997470 (Version 2)
Quarter: 2016Q1

REPORT INFORMATION
  Report Type: Report from Study
  Country: GB (occurrence: GB)
  Receive Date: 20160203
  Receipt Date: 20160209
  Transmission Date: 20160526
  Serious: Yes (Hospitalization)
  Sender: FDA-Public Use
  Company Number: GB-ROCHE-1703239

PATIENT
  Age: 56 Year
  Sex: Female

DRUGS (9)
  1. LEVOFLOXACIN. [Concomitant]
     Active Substance: LEVOFLOXACIN
     Dosage: START DAY 5 FOLLOWING CHEMO FOR 10 DAYS
     Route: 048
     Dates: start: 20151130
  2. DEXAMETHASONE. [Concomitant]
     Active Substance: DEXAMETHASONE
     Dosage: STANDARD DRUG IN SECOND STEROID REGIME,PRIOR TO CHEMO CYCLE
     Route: 048
     Dates: start: 20151125
  3. LOPERAMIDE [Concomitant]
     Active Substance: LOPERAMIDE
     Dosage: STANDARD DRUG IN SECOND CHEMO REGIME, AS NEEDED
     Route: 048
     Dates: start: 20151126
  4. DOMPERIDONE [Concomitant]
     Active Substance: DOMPERIDONE
     Dosage: STANDARD DRUG IN SECOND CHEMO REGIME, AS NEEDED
     Route: 048
     Dates: start: 20151126
  5. XGEVA [Concomitant]
     Active Substance: DENOSUMAB
     Route: 058
     Dates: start: 20150820
  6. DENOSUMAB [Suspect]
     Active Substance: DENOSUMAB
     Indication: BREAST CANCER
     Dosage: 1 CYCLE
     Route: 058
     Dates: start: 20150723
  7. CALCICHEW [Concomitant]
     Active Substance: CALCIUM CARBONATE
     Dosage: STANDARD SUPPLIMENT
     Route: 048
     Dates: start: 20150723
  8. LETROZOLE. [Suspect]
     Active Substance: LETROZOLE
     Indication: BREAST CANCER
     Route: 048
     Dates: start: 20150709, end: 20151015
  9. FLUCONAZOLE. [Concomitant]
     Active Substance: FLUCONAZOLE
     Dosage: START DAY 5 POST CHEMO FOR 7 DAYS
     Route: 048
     Dates: start: 20151130

REACTIONS (2)
  - Influenza like illness [Recovered/Resolved]
  - Gastrointestinal haemorrhage [Recovered/Resolved]

NARRATIVE: CASE EVENT DATE: 20151202
